FAERS Safety Report 24593011 (Version 1)
Quarter: 2024Q4

REPORT INFORMATION
  Report Type: Spontaneous
  Country: US (occurrence: None)
  Receive Date: 20241107
  Receipt Date: 20241107
  Transmission Date: 20250115
  Serious: Yes (Other)
  Sender: Public
  Company Number: None

PATIENT
  Age: 63 Year
  Sex: Female
  Weight: 39.15 kg

DRUGS (1)
  1. REMICADE [Suspect]
     Active Substance: INFLIXIMAB
     Indication: Crohn^s disease
     Dosage: OTHER FREQUENCY : 0, 2, 6 WEEKS;?
     Route: 042
     Dates: start: 20240925, end: 20241107

REACTIONS (6)
  - Infusion related reaction [None]
  - Chills [None]
  - Chills [None]
  - Pyrexia [None]
  - Retching [None]
  - Therapy interrupted [None]

NARRATIVE: CASE EVENT DATE: 20241107
